FAERS Safety Report 6718640-3 (Version None)
Quarter: 2010Q2

REPORT INFORMATION
  Report Type: 
  Country: None (occurrence: None)
  Receive Date: 20100504
  Receipt Date: 20100422
  Transmission Date: 20101027
  Serious: Yes (Hospitalization, Other)
  Sender: FDA-Public Use
  Company Number: 230020M10GBR

PATIENT
  Age: 53 Year
  Sex: Female

DRUGS (9)
  1. REBIF [Suspect]
     Indication: MULTIPLE SCLEROSIS
     Dosage: 44
  2. REGURIN (TROSPIUM CHLORIDE) [Concomitant]
  3. SOLIFENACIN (SOLIFENACIN) [Concomitant]
  4. PREGABALIN [Concomitant]
  5. AMITRIPTYLINE HYDROCHLORIDE [Concomitant]
  6. OMEPRAZOLE [Concomitant]
  7. SIMVASTATIN [Concomitant]
  8. FEXOFENADINE HCL [Concomitant]
  9. BECLAMETHASONE (BECLOMETASONE DIPROPIONATE) [Concomitant]

REACTIONS (1)
  - RENAL FAILURE ACUTE [None]
